FAERS Safety Report 16131526 (Version 1)
Quarter: 2019Q1

REPORT INFORMATION
  Report Type: Spontaneous
  Country: US (occurrence: US)
  Receive Date: 20190328
  Receipt Date: 20190328
  Transmission Date: 20190418
  Serious: No
  Sender: FDA-Public Use
  Company Number: US-JNJFOC-20190300791

PATIENT
  Age: 14 Month
  Sex: Male
  Weight: 6.8 kg

DRUGS (2)
  1. INFANTS TYLENOL [Suspect]
     Active Substance: ACETAMINOPHEN
     Indication: COUGH
     Route: 048
     Dates: start: 20190227
  2. INFANTS TYLENOL [Suspect]
     Active Substance: ACETAMINOPHEN
     Indication: NASOPHARYNGITIS
     Route: 048
     Dates: start: 20190227

REACTIONS (2)
  - Off label use [Unknown]
  - Product use in unapproved indication [Unknown]
